FAERS Safety Report 6572556-4 (Version None)
Quarter: 2010Q1

REPORT INFORMATION
  Report Type: 
  Country: None (occurrence: None)
  Receive Date: 20100205
  Receipt Date: 20100201
  Transmission Date: 20100710
  Serious: Yes (Hospitalization)
  Sender: FDA-Public Use
  Company Number: US-GILEAD-2009-0025202

PATIENT
  Sex: Female
  Weight: 97.61 kg

DRUGS (23)
  1. LETAIRIS [Suspect]
     Indication: PULMONARY ARTERIAL HYPERTENSION
     Route: 048
     Dates: start: 20070928, end: 20090831
  2. LASIX [Concomitant]
  3. LIPITOR [Concomitant]
  4. NITROLINGUAL [Concomitant]
  5. PLAVIX [Concomitant]
  6. ZETIA [Concomitant]
  7. LOPRESSOR [Concomitant]
  8. PRINIVIL [Concomitant]
  9. CYMBALTA [Concomitant]
  10. SINGULAIR [Concomitant]
  11. SPIRIVA [Concomitant]
  12. PROVENTIL [Concomitant]
  13. FORADIL [Concomitant]
  14. FLONASE [Concomitant]
  15. QVAR 40 [Concomitant]
  16. ZYRTEC [Concomitant]
  17. REQUIP [Concomitant]
  18. WELLBUTRIN SR [Concomitant]
  19. SYNTHROID [Concomitant]
  20. LANTUS [Concomitant]
  21. NOVOLOG [Concomitant]
  22. NEXIUM [Concomitant]
  23. KLOR-CON [Concomitant]

REACTIONS (2)
  - ASTHMA [None]
  - HAEMOGLOBIN DECREASED [None]
